FAERS Safety Report 7322151-4 (Version None)
Quarter: 2011Q1

REPORT INFORMATION
  Report Type: 
  Country: None (occurrence: None)
  Receive Date: 20110228
  Receipt Date: 20110223
  Transmission Date: 20110831
  Serious: Yes (Other)
  Sender: FDA-Public Use
  Company Number: US-ALLERGAN-1102652US

PATIENT
  Age: 40 Year
  Sex: Male

DRUGS (1)
  1. REFRESH TEARS [Suspect]
     Indication: PRODUCT USED FOR UNKNOWN INDICATION
     Dosage: 1 GTT, SINGLE
     Route: 047
     Dates: start: 20100801, end: 20100801

REACTIONS (1)
  - EYE BURNS [None]
